FAERS Safety Report 4691151-5 (Version None)
Quarter: 2005Q2

REPORT INFORMATION
  Report Type: 
  Country: None (occurrence: None)
  Receive Date: 20050610
  Receipt Date: 20050601
  Transmission Date: 20051028
  Serious: Yes (Other)
  Sender: FDA-Public Use
  Company Number: 2005-06-0091

PATIENT
  Age: 50 Year
  Sex: Male
  Weight: 61 kg

DRUGS (2)
  1. PEG-INTRON [Suspect]
     Indication: HEPATITIS C
     Dosage: 100 MCG QW SUBCUTANEOUS
     Route: 058
     Dates: start: 20050418, end: 20050530
  2. REBETOL [Suspect]
     Indication: HEPATITIS C
     Dosage: 800 MG ORAL
     Route: 048
     Dates: start: 20050418, end: 20050530

REACTIONS (8)
  - ALPHA-1 ANTI-TRYPSIN INCREASED [None]
  - AUTOIMMUNE DISORDER [None]
  - BLOOD AMYLASE DECREASED [None]
  - BLOOD AMYLASE INCREASED [None]
  - FACIAL PALSY [None]
  - LIPASE INCREASED [None]
  - PANCREATIC ENZYMES INCREASED [None]
  - PANCREATITIS [None]
